FAERS Safety Report 6788826-0 (Version None)
Quarter: 2010Q2

REPORT INFORMATION
  Report Type: 
  Country: None (occurrence: None)
  Receive Date: 20100623
  Receipt Date: 20080717
  Transmission Date: 20101027
  Serious: No
  Sender: FDA-Public Use
  Company Number: US-PFIZER INC-2008036600

PATIENT
  Sex: Female
  Weight: 113.63 kg

DRUGS (5)
  1. AROMASIN [Suspect]
     Indication: BREAST CANCER
     Dates: start: 20070101
  2. TAMOXIFEN [Suspect]
     Indication: BREAST CANCER
     Dates: start: 20070701, end: 20071101
  3. ZOMETA [Concomitant]
  4. SYNTHROID [Concomitant]
  5. OMEPRAZOLE [Concomitant]

REACTIONS (2)
  - ARTHRALGIA [None]
  - HYPOAESTHESIA [None]
